FAERS Safety Report 6164527-7 (Version None)
Quarter: 2009Q2

REPORT INFORMATION
  Report Type: 
  Country: None (occurrence: None)
  Receive Date: 20090421
  Receipt Date: 20090408
  Transmission Date: 20091009
  Serious: Yes (Other)
  Sender: FDA-Public Use
  Company Number: GXKR2009ES04478

PATIENT
  Age: 70 Year
  Sex: Male

DRUGS (6)
  1. 5-FLUOROURACIL (NGX) (5-FLUOROURACIL) [Suspect]
     Indication: LUNG NEOPLASM
  2. 5-FLUOROURACIL (NGX) (5-FLUOROURACIL) [Suspect]
     Indication: RECTAL CANCER
  3. IRINOTECAN HCL [Suspect]
     Indication: LUNG NEOPLASM
  4. IRINOTECAN HCL [Suspect]
     Indication: RECTAL CANCER
  5. OXALIPLATIN (NGX) (OXALIPLATIN) [Suspect]
     Indication: LUNG NEOPLASM
  6. OXALIPLATIN (NGX) (OXALIPLATIN) [Suspect]
     Indication: RECTAL CANCER

REACTIONS (2)
  - METASTASES TO SKIN [None]
  - METASTATIC MALIGNANT MELANOMA [None]
